FAERS Safety Report 8567698-8 (Version None)
Quarter: 2012Q3

REPORT INFORMATION
  Report Type: 
  Country: None (occurrence: None)
  Receive Date: 20120803
  Receipt Date: 20120723
  Transmission Date: 20120928
  Serious: Yes (Other)
  Sender: FDA-Public Use
  Company Number: FR-ELI_LILLY_AND_COMPANY-FR201207006593

PATIENT
  Sex: Male

DRUGS (3)
  1. VENLAFAXINE [Concomitant]
  2. THERALENE [Concomitant]
     Dosage: 20 MG, BID
  3. ZYPREXA [Suspect]
     Indication: DEPRESSION
     Dosage: 7.5 MG, BID
     Route: 048
     Dates: start: 20120223, end: 20120302

REACTIONS (1)
  - HEPATITIS CHOLESTATIC [None]
